FAERS Safety Report 8783270 (Version 3)
Quarter: 2012Q4

REPORT INFORMATION
  Report Type: 
  Country: US (occurrence: US)
  Receive Date: 20120913
  Receipt Date: 20120926
  Transmission Date: 20130627
  Serious: Yes (Death)
  Sender: FDA-Public Use
  Company Number: US-AMGEN-USASP2012057631

PATIENT
  Age: 72 Year
  Sex: Male
  Weight: 70.75 kg

DRUGS (1)
  1. NEULASTA [Suspect]
     Indication: PRODUCT USED FOR UNKNOWN INDICATION
     Dosage: 6 mg, one time dose
     Route: 058
     Dates: start: 20120822, end: 20120822

REACTIONS (1)
  - Pancreatic carcinoma [Fatal]
